FAERS Safety Report 6616227-4 (Version None)
Quarter: 2010Q1

REPORT INFORMATION
  Report Type: 
  Country: None (occurrence: None)
  Receive Date: 20100305
  Receipt Date: 20100222
  Transmission Date: 20100710
  Serious: Yes (Hospitalization)
  Sender: FDA-Public Use
  Company Number: CH-WATSON-2010-02450

PATIENT

DRUGS (1)
  1. VERAPAMIL HYDROCHLORIDE (WATSON LABORATORIES) [Suspect]
     Indication: DRUG USE FOR UNKNOWN INDICATION
     Dosage: 4.8 G, UNK
     Route: 048

REACTIONS (6)
  - ATRIOVENTRICULAR BLOCK [None]
  - BRADYCARDIA [None]
  - GRAND MAL CONVULSION [None]
  - HYPOTENSION [None]
  - POISONING [None]
  - PULMONARY OEDEMA [None]
